FAERS Safety Report 4877686-0 (Version None)
Quarter: 2005Q4

REPORT INFORMATION
  Report Type: 
  Country: None (occurrence: None)
  Receive Date: 20051206
  Receipt Date: 20050926
  Transmission Date: 20060501
  Serious: No
  Sender: FDA-Public Use
  Company Number: USA0509109080

PATIENT
  Age: 70 Year
  Sex: Male

DRUGS (2)
  1. CYMBALTA [Suspect]
     Indication: PAIN IN EXTREMITY
     Dosage: 60 MG/ 1 DAY
     Dates: start: 20050101, end: 20050101
  2. GLUCOPHAGE [Concomitant]

REACTIONS (2)
  - DEPRESSION [None]
  - SOMNOLENCE [None]
